FAERS Safety Report 6254188-0 (Version None)
Quarter: 2009Q3

REPORT INFORMATION
  Report Type: 
  Country: None (occurrence: None)
  Receive Date: 20090701
  Receipt Date: 20090701
  Transmission Date: 20100115
  Serious: No
  Sender: FDA-Public Use
  Company Number: None

PATIENT
  Sex: Female
  Weight: 69.4003 kg

DRUGS (2)
  1. PAXIL CR [Suspect]
     Indication: EATING DISORDER
     Dosage: 30 MG QD PO
     Route: 048
     Dates: start: 20030201, end: 20090701
  2. PAXIL CR [Suspect]
     Indication: SOCIAL PHOBIA
     Dosage: 30 MG QD PO
     Route: 048
     Dates: start: 20030201, end: 20090701

REACTIONS (19)
  - COLD SWEAT [None]
  - CONFUSIONAL STATE [None]
  - CRYING [None]
  - DISTURBANCE IN ATTENTION [None]
  - DIZZINESS [None]
  - DRUG WITHDRAWAL SYNDROME [None]
  - FATIGUE [None]
  - LIBIDO DECREASED [None]
  - MOOD SWINGS [None]
  - MUSCLE TWITCHING [None]
  - NAUSEA [None]
  - NEGATIVE THOUGHTS [None]
  - PARAESTHESIA [None]
  - RESTLESSNESS [None]
  - SELF-INJURIOUS IDEATION [None]
  - SUICIDAL IDEATION [None]
  - TACHYPHRENIA [None]
  - TREMOR [None]
  - WEIGHT INCREASED [None]
